FAERS Safety Report 6221124-2 (Version None)
Quarter: 2009Q2

REPORT INFORMATION
  Report Type: 
  Country: None (occurrence: None)
  Receive Date: 20090610
  Receipt Date: 20090529
  Transmission Date: 20091009
  Serious: Yes (Other)
  Sender: FDA-Public Use
  Company Number: B0578065A

PATIENT
  Sex: Male

DRUGS (4)
  1. ORAXIM [Suspect]
     Indication: ACUTE TONSILLITIS
     Dosage: 500MG PER DAY
     Route: 048
     Dates: start: 20081126, end: 20081202
  2. FLUMUCIL [Concomitant]
     Dates: start: 20081126, end: 20081201
  3. TALOFEN [Concomitant]
  4. RISPERDAL [Concomitant]

REACTIONS (3)
  - GRAND MAL CONVULSION [None]
  - PETECHIAE [None]
  - URTICARIA [None]
